FAERS Safety Report 19796885 (Version 1)
Quarter: 2021Q3

REPORT INFORMATION
  Report Type: Spontaneous
  Country: CN (occurrence: CN)
  Receive Date: 20210907
  Receipt Date: 20210907
  Transmission Date: 20211014
  Serious: Yes (Other)
  Sender: FDA-Public Use
  Company Number: CN-LUPIN PHARMACEUTICALS INC.-2021-16494

PATIENT
  Age: 6 Month
  Sex: Female

DRUGS (16)
  1. LEVETIRACETAM. [Suspect]
     Active Substance: LEVETIRACETAM
     Indication: PARTIAL SEIZURES
  2. PHENOBARBITAL. [Suspect]
     Active Substance: PHENOBARBITAL
     Indication: PARTIAL SEIZURES
  3. TOPIRAMATE. [Suspect]
     Active Substance: TOPIRAMATE
     Indication: PARTIAL SEIZURES
  4. OXCARBAZEPINE. [Suspect]
     Active Substance: OXCARBAZEPINE
     Indication: PARTIAL SEIZURES
  5. ZONISAMIDE. [Suspect]
     Active Substance: ZONISAMIDE
     Indication: PARTIAL SEIZURES
  6. VALPROATE [Suspect]
     Active Substance: VALPROIC ACID
     Indication: INFANTILE SPASMS
     Dosage: UNK
     Route: 065
  7. CLOBAZAM. [Suspect]
     Active Substance: CLOBAZAM
     Indication: INFANTILE SPASMS
     Dosage: UNK
     Route: 065
  8. NITRAZEPAM [Suspect]
     Active Substance: NITRAZEPAM
     Indication: INFANTILE SPASMS
     Dosage: UNK
     Route: 065
  9. NITRAZEPAM [Suspect]
     Active Substance: NITRAZEPAM
     Indication: PARTIAL SEIZURES
  10. TOPIRAMATE. [Suspect]
     Active Substance: TOPIRAMATE
     Indication: INFANTILE SPASMS
     Dosage: UNK
     Route: 065
  11. CLOBAZAM. [Suspect]
     Active Substance: CLOBAZAM
     Indication: PARTIAL SEIZURES
  12. VALPROATE [Suspect]
     Active Substance: VALPROIC ACID
     Indication: PARTIAL SEIZURES
  13. ZONISAMIDE. [Suspect]
     Active Substance: ZONISAMIDE
     Indication: INFANTILE SPASMS
     Dosage: UNK
     Route: 065
  14. PHENOBARBITAL. [Suspect]
     Active Substance: PHENOBARBITAL
     Indication: INFANTILE SPASMS
     Dosage: UNK
     Route: 065
  15. OXCARBAZEPINE. [Suspect]
     Active Substance: OXCARBAZEPINE
     Indication: INFANTILE SPASMS
     Dosage: UNK
     Route: 065
  16. LEVETIRACETAM. [Suspect]
     Active Substance: LEVETIRACETAM
     Indication: INFANTILE SPASMS
     Dosage: UNK
     Route: 065

REACTIONS (1)
  - Drug ineffective [Unknown]
